FAERS Safety Report 13253060 (Version 2)
Quarter: 2017Q1

REPORT INFORMATION
  Report Type: Spontaneous
  Country: US (occurrence: US)
  Receive Date: 20170220
  Receipt Date: 20170222
  Transmission Date: 20170428
  Serious: No
  Sender: FDA-Public Use
  Company Number: US-FRESENIUS KABI-FK201701308

PATIENT
  Age: 51 Year
  Sex: Male
  Weight: 105.1 kg

DRUGS (1)
  1. HEPARIN SODIUM INJECTION, USP [Suspect]
     Active Substance: HEPARIN SODIUM
     Indication: ANTICOAGULANT THERAPY
     Route: 065
     Dates: start: 20170209, end: 20170209

REACTIONS (2)
  - Drug ineffective [Recovered/Resolved]
  - Heparin resistance [Recovered/Resolved]

NARRATIVE: CASE EVENT DATE: 20170209
